FAERS Safety Report 16965034 (Version 1)
Quarter: 2019Q4

REPORT INFORMATION
  Report Type: Spontaneous
  Country: SE (occurrence: SE)
  Receive Date: 20191028
  Receipt Date: 20191028
  Transmission Date: 20200122
  Serious: Yes (Other)
  Sender: FDA-Public Use
  Company Number: SE-TEVA-2019-SE-1127754

PATIENT
  Age: 70 Year
  Sex: Male

DRUGS (4)
  1. EBIXA [Concomitant]
     Active Substance: MEMANTINE HYDROCHLORIDE
  2. MIRTAZAPIN [Concomitant]
     Active Substance: MIRTAZAPINE
  3. DONEPEZIL. [Concomitant]
     Active Substance: DONEPEZIL
  4. RISPERIDONE. [Suspect]
     Active Substance: RISPERIDONE
     Indication: DEMENTIA ALZHEIMER^S TYPE
     Dosage: 0.5 MG
     Route: 048
     Dates: start: 20190828

REACTIONS (1)
  - Deep vein thrombosis [Unknown]

NARRATIVE: CASE EVENT DATE: 20190923
